FAERS Safety Report 20833065 (Version 1)
Quarter: 2022Q2

REPORT INFORMATION
  Report Type: Spontaneous
  Country: US (occurrence: US)
  Receive Date: 20220516
  Receipt Date: 20220516
  Transmission Date: 20220721
  Serious: No
  Sender: FDA-Public Use
  Company Number: US-BRISTOL-MYERS SQUIBB COMPANY-2022-022806

PATIENT
  Age: 67 Year
  Sex: Female

DRUGS (10)
  1. REVLIMID [Suspect]
     Active Substance: LENALIDOMIDE
     Indication: Plasma cell myeloma
     Route: 048
  2. ELIQUIS [Suspect]
     Active Substance: APIXABAN
     Indication: Plasma cell myeloma
     Route: 048
  3. VITAMINS NOS [Concomitant]
     Active Substance: VITAMINS
  4. DEXAMETHASONE [Concomitant]
     Active Substance: DEXAMETHASONE
     Route: 048
  5. AMLODIPINE [Concomitant]
     Active Substance: AMLODIPINE BESYLATE
  6. BUSPIRONE [Concomitant]
     Active Substance: BUSPIRONE HYDROCHLORIDE
  7. BUSPIRONE [Concomitant]
     Active Substance: BUSPIRONE HYDROCHLORIDE
  8. ATORVASTATIN [Concomitant]
     Active Substance: ATORVASTATIN
  9. OMEPRAZOLE [Concomitant]
     Active Substance: OMEPRAZOLE
  10. COLESTIPOL [Concomitant]
     Active Substance: COLESTIPOL

REACTIONS (3)
  - Laboratory test abnormal [Unknown]
  - Blood potassium abnormal [Unknown]
  - Fatigue [Unknown]
